FAERS Safety Report 8103716-9 (Version None)
Quarter: 2012Q1

REPORT INFORMATION
  Report Type: 
  Country: None (occurrence: None)
  Receive Date: 20120201
  Receipt Date: 20120126
  Transmission Date: 20120608
  Serious: Yes (Death, Other)
  Sender: FDA-Public Use
  Company Number: US-PFIZER INC-2011151674

PATIENT
  Sex: Female

DRUGS (4)
  1. CHANTIX [Suspect]
     Indication: SMOKING CESSATION THERAPY
     Dosage: 0.5 MG, UNK
     Dates: start: 20061228, end: 20070128
  2. OXYCODONE [Concomitant]
     Indication: PAIN
     Dosage: UNK
     Dates: start: 20010711, end: 20070202
  3. CHANTIX [Suspect]
     Dosage: 1 MG, UNK
     Dates: start: 20070129, end: 20070206
  4. PERCOCET [Concomitant]
     Indication: PAIN
     Dosage: UNK
     Dates: start: 20010711, end: 20070202

REACTIONS (4)
  - INTENTIONAL OVERDOSE [None]
  - SUICIDE ATTEMPT [None]
  - DEPRESSION [None]
  - COMPLETED SUICIDE [None]
